FAERS Safety Report 20218985 (Version 1)
Quarter: 2021Q4

REPORT INFORMATION
  Report Type: Spontaneous
  Country: US (occurrence: US)
  Receive Date: 20211222
  Receipt Date: 20211222
  Transmission Date: 20220303
  Serious: No
  Sender: FDA-Public Use
  Company Number: US-BioHaven Pharmaceuticals-2021BHV002959

PATIENT

DRUGS (1)
  1. NURTEC ODT [Suspect]
     Active Substance: RIMEGEPANT SULFATE
     Indication: Migraine
     Dosage: ON NURTEC 6-7 MONTHS
     Route: 065
     Dates: start: 2021

REACTIONS (3)
  - Feeling abnormal [Unknown]
  - Photophobia [Unknown]
  - Aura [Unknown]
